FAERS Safety Report 18610505 (Version 1)
Quarter: 2020Q4

REPORT INFORMATION
  Report Type: Spontaneous
  Country: AU (occurrence: AU)
  Receive Date: 20201214
  Receipt Date: 20201214
  Transmission Date: 20210114
  Serious: Yes (Death, Other)
  Sender: FDA-Public Use
  Company Number: AU-PFIZER INC-HQWYE147811MAY07

PATIENT
  Sex: Female

DRUGS (6)
  1. DIAZEPAM. [Interacting]
     Active Substance: DIAZEPAM
     Dosage: UNK
     Route: 065
  2. NALTREXONE [Interacting]
     Active Substance: NALTREXONE
     Indication: DRUG DEPENDENCE
     Dosage: UNK
     Route: 059
  3. PROPANOLOL HCL [Suspect]
     Active Substance: PROPRANOLOL HYDROCHLORIDE
     Dosage: UNK
     Route: 065
  4. PARACETAMOL [Interacting]
     Active Substance: ACETAMINOPHEN
     Dosage: UNK
     Route: 065
  5. METAMFETAMINE [Interacting]
     Active Substance: METHAMPHETAMINE
     Dosage: UNK
     Route: 065
  6. DOXEPIN HCL [Interacting]
     Active Substance: DOXEPIN HYDROCHLORIDE
     Dosage: UNK
     Route: 065

REACTIONS (3)
  - Implant site pain [Unknown]
  - Delirium [Unknown]
  - Drug interaction [Fatal]
